FAERS Safety Report 17339511 (Version 1)
Quarter: 2020Q1

REPORT INFORMATION
  Report Type: Report from Study
  Country: US (occurrence: US)
  Receive Date: 20200129
  Receipt Date: 20200129
  Transmission Date: 20200409
  Serious: No
  Sender: FDA-Public Use
  Company Number: US-KYOWAKIRIN-2020BKK000580

PATIENT

DRUGS (1)
  1. CRYSVITA [Suspect]
     Active Substance: BUROSUMAB-TWZA
     Indication: PRODUCT USED FOR UNKNOWN INDICATION
     Dosage: 90 MG, 1X/4 WEEKS
     Route: 065
     Dates: start: 20200113

REACTIONS (5)
  - Blood pressure increased [Recovering/Resolving]
  - Pain [Recovering/Resolving]
  - Fear of injection [Unknown]
  - Nausea [Recovering/Resolving]
  - Myofascial spasm [Recovering/Resolving]

NARRATIVE: CASE EVENT DATE: 20200113
